FAERS Safety Report 8245448 (Version 3)
Quarter: 2013Q1

REPORT INFORMATION
  Report Type: Spontaneous
  Country: US (occurrence: US)
  Receive Date: 20111115
  Receipt Date: 20130109
  Transmission Date: 20140127
  Serious: Yes (Other)
  Sender: FDA-Public Use
  Company Number: PHEH2011US05463

PATIENT
  Age: 53 Year
  Sex: Female
  Weight: 58.96 kg

DRUGS (7)
  1. GILENYA [Suspect]
     Indication: MULTIPLE SCLEROSIS
     Dosage: 0.5 MG, QD
     Route: 048
     Dates: start: 20110405
  2. AMANTADINE [Concomitant]
     Dosage: 100 MG, UNK
  3. MULTIVIT [Concomitant]
     Dosage: UNK UKN, UNK
  4. LEXAPRO [Concomitant]
     Dosage: 5 MG, UNK
  5. FORTEO [Concomitant]
  6. VITAMIN D [Concomitant]
     Dosage: 1000 U, UNK
  7. CALTRATE [Concomitant]
     Dosage: 600 MG, UNK

REACTIONS (6)
  - Cataract [Unknown]
  - Musculoskeletal stiffness [Unknown]
  - Dyskinesia [Unknown]
  - Blood pressure fluctuation [Unknown]
  - Choking [Unknown]
  - Dizziness [Recovered/Resolved]
